FAERS Safety Report 5629411-3 (Version None)
Quarter: 2008Q1

REPORT INFORMATION
  Report Type: 
  Country: None (occurrence: None)
  Receive Date: 20080215
  Receipt Date: 20080215
  Transmission Date: 20080703
  Serious: Yes (Other)
  Sender: FDA-Public Use
  Company Number: None

PATIENT
  Sex: Female

DRUGS (2)
  1. DAPTOMYCIN [Suspect]
     Indication: OSTEOMYELITIS
     Dosage: DAPTOMYCIN 4MG IV QD
     Route: 042
     Dates: start: 20071109, end: 20071226
  2. CEFEPIME [Suspect]
     Dosage: CEFEPINE 26MS IV Q12H
     Route: 042
     Dates: start: 20071109, end: 20071226

REACTIONS (2)
  - PRURITUS [None]
  - RASH MACULAR [None]
